FAERS Safety Report 20975372 (Version 6)
Quarter: 2022Q3

REPORT INFORMATION
  Report Type: Report from Study
  Country: KR (occurrence: None)
  Receive Date: 20220617
  Receipt Date: 20220907
  Transmission Date: 20221027
  Serious: Yes (Life-Threatening, Hospitalization)
  Sender: FDA-Public Use
  Company Number: KR-ROCHE-3119652

PATIENT
  Age: 62 Year
  Sex: Female
  Weight: 54.7 kg

DRUGS (6)
  1. ENTRECTINIB [Suspect]
     Active Substance: ENTRECTINIB
     Indication: Lung cancer metastatic
     Dosage: DATE OF MOST RECENT DOSE OF ENTERECTININB (400 MG) PRIOR TO AE AND SAE ONSET: 26/JUL/2022
     Route: 048
     Dates: start: 20190806
  2. FEROBA YOU SR [Concomitant]
     Indication: Anaemia
     Route: 048
     Dates: start: 20191029
  3. ALAXYL [Concomitant]
     Active Substance: PLANTAGO SEED\SENNA LEAF
     Route: 048
     Dates: start: 20220215
  4. RISPERIDONE [Concomitant]
     Active Substance: RISPERIDONE
     Indication: Osteoporosis
     Dosage: DRUG DOSE FIRST ADMINISTERED IS 1 TABLET ;ONGOING: YES
     Route: 048
     Dates: start: 201906
  5. ATORVASTATIN CALCIUM\EZETIMIBE [Concomitant]
     Active Substance: ATORVASTATIN CALCIUM\EZETIMIBE
     Indication: Dyslipidaemia
     Dosage: GIVEN FOR PROPHYLAXIS IS YES ;ONGOING: YES
     Route: 048
     Dates: start: 20220126
  6. CHLORPHENIRAMINE MALEATE [Concomitant]
     Active Substance: CHLORPHENIRAMINE MALEATE
     Dosage: 4MG/2ML INJ.
     Route: 042
     Dates: start: 20220712, end: 20220712

REACTIONS (1)
  - Cardiac tamponade [Recovered/Resolved]

NARRATIVE: CASE EVENT DATE: 20220610
